FAERS Safety Report 14545798 (Version 3)
Quarter: 2018Q2

REPORT INFORMATION
  Report Type: Report from Study
  Country: None (occurrence: US)
  Receive Date: 20180219
  Receipt Date: 20180504
  Transmission Date: 20180711
  Serious: Yes (Hospitalization, Other)
  Sender: FDA-Public Use
  Company Number: US-ABBVIE-18K-163-2257319-00

PATIENT
  Sex: Female

DRUGS (2)
  1. COUMADIN [Concomitant]
     Active Substance: WARFARIN SODIUM
     Indication: ANTICOAGULANT THERAPY
  2. HUMIRA [Suspect]
     Active Substance: ADALIMUMAB
     Indication: PSORIATIC ARTHROPATHY
     Route: 058

REACTIONS (10)
  - Post procedural fever [Recovered/Resolved]
  - Drug ineffective [Recovering/Resolving]
  - Rheumatoid arthritis [Recovering/Resolving]
  - Arthralgia [Recovered/Resolved]
  - Sensitivity to weather change [Recovered/Resolved]
  - Intestinal polyp [Recovering/Resolving]
  - Bursitis [Recovered/Resolved]
  - Discomfort [Unknown]
  - Psoriatic arthropathy [Recovered/Resolved]
  - Precancerous cells present [Recovering/Resolving]

NARRATIVE: CASE EVENT DATE: 2013
